FAERS Safety Report 18363068 (Version 3)
Quarter: 2020Q4

REPORT INFORMATION
  Report Type: Spontaneous
  Country: None (occurrence: US)
  Receive Date: 20201009
  Receipt Date: 20201030
  Transmission Date: 20210114
  Serious: Yes (Other)
  Sender: FDA-Public Use
  Company Number: US-SA-2020SA272652

PATIENT

DRUGS (17)
  1. HYDROCORTISONE. [Suspect]
     Active Substance: HYDROCORTISONE
     Dosage: THE ENDOCRINOLOGIST ADVISED PARENTS TO INSTEAD CUT THE TABLETS INTO HALVES AND QUARTERS, BECAUSE IT
     Route: 048
  2. FLUDROCORTISONE [Concomitant]
     Active Substance: FLUDROCORTISONE
     Indication: ADRENOGENITAL SYNDROME
  3. SODIUM CHLORIDE. [Concomitant]
     Active Substance: SODIUM CHLORIDE
     Indication: ADRENOGENITAL SYNDROME
  4. HYDROCORTISONE. [Suspect]
     Active Substance: HYDROCORTISONE
     Indication: ADRENOGENITAL SYNDROME
     Dosage: 10 G, QD
  5. HYDROCORTISONE. [Suspect]
     Active Substance: HYDROCORTISONE
     Dosage: 4 DOSES A DAY EVERY 6 HOURS STARTING AT 6 AM (5.8 MG/M2/D)  [CRUSH THE TABLETS AND MAKE A SOLUTION I
     Route: 048
  6. HYDROCORTISONE. [Suspect]
     Active Substance: HYDROCORTISONE
     Dosage: 1.2 MG 3 TIMES A DAY (12.6 MG/M2/D) USING A COMPOUNDED 2-MG/ML SUSPENSION
     Route: 048
  7. HYDROCORTISONE. [Suspect]
     Active Substance: HYDROCORTISONE
     Dosage: TABLETS THAT WERE QUARTERED AND GIVEN 3 TIMES DAILY
     Route: 048
  8. SODIUM CHLORIDE. [Concomitant]
     Active Substance: SODIUM CHLORIDE
     Indication: RENAL SALT-WASTING SYNDROME
     Dosage: 10.2 MEQ/KG QD
  9. HYDROCORTISONE. [Suspect]
     Active Substance: HYDROCORTISONE
     Dosage: HYDROCORTISONE 1.3 MG 3 TIMES DAILY (18.7 MG/M2/DAY) USING A COMPOUNDED 2-MG/ML SUSPENSION
     Route: 048
  10. HYDROCORTISONE. [Suspect]
     Active Substance: HYDROCORTISONE
     Dosage: HER HYDROCORTISONE DOSE GRADUALLY INCREASED FROM 7.1 MG/M2/DAY TO 12.2 MG/M2/DAY. BECAUSE THE TOTAL
     Route: 048
  11. HYDROCORTISONE. [Suspect]
     Active Substance: HYDROCORTISONE
     Dosage: HER HYDROCORTISONE DOSE GRADUALLY INCREASED FROM 7.1 MG/M2/DAY TO 12.2 MG/M2/DAY. BECAUSE THE TOTAL
     Route: 048
  12. HYDROCORTISONE. [Suspect]
     Active Substance: HYDROCORTISONE
     Dosage: CRUSH THE TABLETS AND MAKE A SOLUTION IN WATER, THEN DRAW THE PRESCRIBED AMOUNT
     Route: 048
  13. HYDROCORTISONE. [Suspect]
     Active Substance: HYDROCORTISONE
     Indication: RENAL SALT-WASTING SYNDROME
     Dosage: MEAN TOTAL DAILY DOSE OF 4.3 MG/D ADMINISTERED BY DISSOLVING 5 MG TABLET IN 5 ML WATER
  14. HYDROCORTISONE. [Suspect]
     Active Substance: HYDROCORTISONE
     Dosage: DOSES RANGED BETWEEN 4.35 AND 5.8 MG/M2/DAY DIVIDED 3 TIMES DAILY [CRUSH THE TABLETS AND MAKE A SOLU
     Route: 048
  15. HYDROCORTISONE. [Suspect]
     Active Substance: HYDROCORTISONE
     Dosage: THE ENDOCRINOLOGIST ADVISED PARENTS TO INSTEAD CUT THE TABLETS INTO HALVES AND QUARTERS, BECAUSE IT
     Route: 048
  16. FLUDROCORTISONE [Concomitant]
     Active Substance: FLUDROCORTISONE
     Indication: RENAL SALT-WASTING SYNDROME
     Dosage: 0.1 MG, QD
  17. HYDROCORTISONE. [Suspect]
     Active Substance: HYDROCORTISONE
     Dosage: 2 MG HYDROCORTISONE AT 6 AM, 1.75 MG AT NOON, 1.5 MG AT 6 PM, AND 2 MG AT MIDNIGHT (8.1 MG/M2/D)
     Route: 048

REACTIONS (9)
  - Growth disorder [Recovered/Resolved]
  - Gastric ulcer [Recovered/Resolved]
  - Hypertension [Recovering/Resolving]
  - Cushing^s syndrome [Recovered/Resolved]
  - Hirsutism [Recovered/Resolved]
  - Wrong technique in product usage process [Recovered/Resolved]
  - Hypothalamic pituitary adrenal axis suppression [Recovered/Resolved]
  - Incorrect dose administered [Recovered/Resolved]
  - Body mass index increased [Recovered/Resolved]
